FAERS Safety Report 8943569 (Version 1)
Quarter: 2012Q4

REPORT INFORMATION
  Report Type: 
  Country: US (occurrence: US)
  Receive Date: 20121204
  Receipt Date: 20121204
  Transmission Date: 20130627
  Serious: No
  Sender: FDA-Public Use
  Company Number: US-PFIZER INC-2012278811

PATIENT
  Age: 53 Year
  Sex: Female

DRUGS (13)
  1. LYRICA [Suspect]
     Indication: FIBROMYALGIA
     Dosage: UNK
     Route: 048
  2. LYRICA [Suspect]
     Dosage: 75 mg, 2x/day
     Route: 048
     Dates: start: 20110818
  3. LYRICA [Suspect]
     Dosage: UNK
     Route: 048
     Dates: start: 201210
  4. LYRICA [Suspect]
     Dosage: 150 mg, 2x/day
     Route: 048
  5. LORTAB [Concomitant]
     Dosage: 10/500,  2x/day
     Route: 048
  6. PROTONIX [Concomitant]
     Dosage: 40 mg, daily
     Route: 048
  7. DEPAKOTE - SLOW RELEASE [Concomitant]
     Dosage: 500 mg, 2x/day, 1tab
     Route: 048
  8. DEPAKOTE - SLOW RELEASE [Concomitant]
     Dosage: 250 mg, QPM
     Route: 048
  9. XANAX [Concomitant]
     Indication: ANXIETY
     Dosage: 0.25 mg, daily PRN
     Route: 048
  10. IBUPROFEN [Concomitant]
     Dosage: 400 mg, q6-8h
  11. GLUCOSAMINE + CHONDROITIN WITH MSM [Concomitant]
     Indication: ROUTINE HEALTH MAINTENANCE
     Dosage: UNK, 3x/day
     Route: 048
  12. CALCIUM 600 +D [Concomitant]
     Dosage: UNK, daily
     Route: 048
  13. FINACEA [Concomitant]
     Indication: ROUTINE HEALTH MAINTENANCE
     Dosage: UNK,  2x/day
     Route: 061

REACTIONS (3)
  - Circumstance or information capable of leading to medication error [Unknown]
  - Capsule physical issue [Unknown]
  - Rash [Unknown]
